FAERS Safety Report 7854253 (Version 3)
Quarter: 2014Q4

REPORT INFORMATION
  Report Type: Report from Study
  Country: DE (occurrence: DE)
  Receive Date: 20110314
  Receipt Date: 20141014
  Transmission Date: 20150529
  Serious: Yes (Death, Hospitalization)
  Sender: FDA-Public Use
  Company Number: DE-ROCHE-763689

PATIENT
  Age: 55 Year
  Sex: Male
  Weight: 60 kg

DRUGS (6)
  1. 5-FLUOROURACIL [Suspect]
     Active Substance: FLUOROURACIL
     Indication: COLON CANCER METASTATIC
     Dosage: PER INFUSION WITH 24-HOUR PUMP
     Route: 042
     Dates: start: 20101130, end: 20101201
  2. GRANISETRON [Suspect]
     Active Substance: GRANISETRON
     Indication: COLON CANCER METASTATIC
     Route: 040
     Dates: start: 20101130, end: 20101130
  3. REGORAFENIB [Suspect]
     Active Substance: REGORAFENIB
     Indication: COLON CANCER METASTATIC
     Dosage: DAY 1 -DAY 21
     Route: 048
     Dates: start: 20140113, end: 20140311
  4. BEVACIZUMAB [Suspect]
     Active Substance: BEVACIZUMAB
     Indication: COLON CANCER METASTATIC
     Dosage: LAST DOSE WAS GIVEN ON 10/JUL/2012
     Route: 042
     Dates: start: 20101130, end: 20101130
  5. IRINOTECAN [Suspect]
     Active Substance: IRINOTECAN
     Indication: COLON CANCER METASTATIC
     Route: 042
     Dates: start: 20101130, end: 20101130
  6. CALCIUMFOLINAT [Suspect]
     Active Substance: LEUCOVORIN CALCIUM
     Indication: COLON CANCER METASTATIC
     Dosage: PER INFUSION 24-HOUR PUMP
     Route: 042
     Dates: start: 20101130, end: 20101201

REACTIONS (6)
  - Death [Fatal]
  - Pollakiuria [Recovered/Resolved]
  - Urinary tract infection [Recovered/Resolved]
  - Hydronephrosis [Recovered/Resolved]
  - Pyrexia [Recovered/Resolved]
  - Dysuria [Recovered/Resolved]

NARRATIVE: CASE EVENT DATE: 20101209
